FAERS Safety Report 6437299-6 (Version None)
Quarter: 2009Q4

REPORT INFORMATION
  Report Type: 
  Country: None (occurrence: None)
  Receive Date: 20091110
  Receipt Date: 20080718
  Transmission Date: 20100525
  Serious: No
  Sender: FDA-Public Use
  Company Number: AEUSA200800159

PATIENT
  Age: 79 Year
  Sex: Female

DRUGS (4)
  1. GAMUNEX [Suspect]
     Indication: DEMYELINATING POLYNEUROPATHY
     Dosage: 20 GM; IV
     Route: 042
     Dates: start: 20040101
  2. TYLENOL (CAPLET) [Concomitant]
  3. CLARITIN /00917501/ [Concomitant]
  4. BENADRYL [Concomitant]

REACTIONS (2)
  - HYPERSENSITIVITY [None]
  - PRODUCT QUALITY ISSUE [None]
